FAERS Safety Report 15605497 (Version 5)
Quarter: 2025Q1

REPORT INFORMATION
  Report Type: Report from Study
  Country: US (occurrence: US)
  Receive Date: 20181112
  Receipt Date: 20250214
  Transmission Date: 20250408
  Serious: Yes (Other)
  Sender: EMD SERONO INC
  Company Number: US-MERCK KGAA-9050665

PATIENT
  Age: 60 Year
  Sex: Female
  Weight: 113 kg

DRUGS (2)
  1. REBIF [Suspect]
     Active Substance: INTERFERON BETA-1A
     Indication: Multiple sclerosis
     Dates: start: 20121103
  2. REBIF [Suspect]
     Active Substance: INTERFERON BETA-1A

REACTIONS (17)
  - Autoimmune disorder [Not Recovered/Not Resolved]
  - Impaired healing [Unknown]
  - Tendon injury [Unknown]
  - Foot deformity [Unknown]
  - Eyelid disorder [Unknown]
  - Post procedural complication [Unknown]
  - Headache [Unknown]
  - Injection site bruising [Not Recovered/Not Resolved]
  - Injection site erythema [Not Recovered/Not Resolved]
  - Injection site pain [Unknown]
  - Lichen planopilaris [Not Recovered/Not Resolved]
  - Multiple sclerosis [Unknown]
  - Fall [Unknown]
  - Feeling abnormal [Unknown]
  - Muscle spasms [Not Recovered/Not Resolved]
  - Distractibility [Not Recovered/Not Resolved]
  - Anaesthetic complication [Unknown]

NARRATIVE: CASE EVENT DATE: 20130101
